FAERS Safety Report 5087106-1 (Version None)
Quarter: 2006Q3

REPORT INFORMATION
  Report Type: 
  Country: None (occurrence: None)
  Receive Date: 20060821
  Receipt Date: 20060809
  Transmission Date: 20061208
  Serious: Yes (Hospitalization, Other)
  Sender: FDA-Public Use
  Company Number: 2006097411

PATIENT
  Age: 59 Year
  Sex: Female

DRUGS (3)
  1. NORVASC [Suspect]
     Indication: HYPERTENSION
     Dosage: 10 MG (10 MG,QD), ORAL
     Route: 048
     Dates: start: 20030101
  2. IRBESARTAN [Concomitant]
  3. PURAN T4 (LEVOTHYROXINE SODIUM) [Concomitant]

REACTIONS (7)
  - HEADACHE [None]
  - INTERVERTEBRAL DISC PROTRUSION [None]
  - MUSCLE SPASMS [None]
  - PALPITATIONS [None]
  - PRURITUS [None]
  - SCAR [None]
  - VASCULITIS [None]
